FAERS Safety Report 4301026-9 (Version None)
Quarter: 2004Q1

REPORT INFORMATION
  Report Type: 
  Country: None (occurrence: None)
  Receive Date: 20040219
  Receipt Date: 20040209
  Transmission Date: 20041129
  Serious: Yes (Hospitalization)
  Sender: FDA-Public Use
  Company Number: 04P-056-0249997-00

PATIENT
  Age: 58 Year
  Sex: Male

DRUGS (1)
  1. TRICOR [Suspect]
     Indication: HYPERLIPIDAEMIA
     Dosage: 200 MG, 1 IN 1 D, ORAL
     Route: 048
     Dates: start: 19940101, end: 19970801

REACTIONS (3)
  - ANTIPHOSPHOLIPID SYNDROME [None]
  - MESENTERIC VEIN THROMBOSIS [None]
  - PULMONARY EMBOLISM [None]
